FAERS Safety Report 8891231 (Version 1)
Quarter: 2012Q4

REPORT INFORMATION
  Report Type: 
  Country: PR (occurrence: PR)
  Receive Date: 20121107
  Receipt Date: 20121107
  Transmission Date: 20130627
  Serious: Yes (Hospitalization, Other)
  Sender: FDA-Public Use
  Company Number: PR-ABBOTT-12P-131-0931087-00

PATIENT
  Age: 64 None
  Sex: Female
  Weight: 69.92 kg

DRUGS (9)
  1. HUMIRA 40 MG/0.8 ML PEN [Suspect]
     Indication: RHEUMATOID ARTHRITIS
     Route: 058
     Dates: start: 2010, end: 20120330
  2. HUMIRA 40 MG/0.8 ML PEN [Suspect]
     Route: 058
     Dates: start: 20120507
  3. FLOVENT HFA [Concomitant]
     Indication: ASTHMA
     Dosage: 1 pump BID
     Route: 048
  4. SEREVENT [Concomitant]
     Indication: ASTHMA
     Dosage: 1 pump BID
     Route: 048
  5. ALROVENT [Concomitant]
     Indication: ASTHMA
     Dosage: 1 pump BID
     Route: 048
     Dates: start: 201203
  6. SINGULAIR [Concomitant]
     Indication: ASTHMA
     Dosage: 1 tablet at bedtime
     Route: 048
  7. LOSARTAN [Concomitant]
     Indication: HYPERTENSION
     Dosage: 100/25mg 1 tab daily
     Route: 048
     Dates: start: 2011
  8. AMLODIPINE [Concomitant]
     Indication: HYPERTENSION
     Dosage: 1 tablet daily
     Route: 048
     Dates: start: 2011
  9. IMURAN [Concomitant]
     Indication: RHEUMATOID ARTHRITIS
     Dosage: 1 tablet daily
     Route: 048

REACTIONS (5)
  - Neoplasm malignant [Recovering/Resolving]
  - Nodule [Unknown]
  - Haemoglobin decreased [Recovering/Resolving]
  - Bacteraemia [Not Recovered/Not Resolved]
  - Nosocomial infection [Not Recovered/Not Resolved]
